FAERS Safety Report 4525503-0 (Version None)
Quarter: 2004Q4

REPORT INFORMATION
  Report Type: 
  Country: None (occurrence: None)
  Receive Date: 20041207
  Receipt Date: 20041125
  Transmission Date: 20050328
  Serious: Yes (Other)
  Sender: FDA-Public Use
  Company Number: WAES 0411USA03469

PATIENT
  Age: 69 Year
  Sex: Male

DRUGS (6)
  1. SINGULAIR [Suspect]
     Indication: ASTHMA
     Dosage: 10 MG/DAILY PO
     Route: 048
     Dates: start: 20030628, end: 20030723
  2. SINGULAIR [Suspect]
     Indication: ASTHMA
     Dosage: 10 MG/DAILY PO
     Route: 048
     Dates: start: 20030818
  3. KLARICID [Concomitant]
  4. NIFEDIPINE [Concomitant]
  5. THEOPHYLLINE [Concomitant]
  6. TRANDOLAPRIL [Concomitant]

REACTIONS (6)
  - DYSPNOEA [None]
  - HEADACHE [None]
  - MENTAL DISORDER [None]
  - RESPIRATORY DISORDER [None]
  - STOMACH DISCOMFORT [None]
  - STRIDOR [None]
